FAERS Safety Report 9367387 (Version 1)
Quarter: 2013Q2

REPORT INFORMATION
  Report Type: Spontaneous
  Country: US (occurrence: US)
  Receive Date: 20130625
  Receipt Date: 20130625
  Transmission Date: 20140414
  Serious: No
  Sender: FDA-Public Use
  Company Number: US-009507513-1306USA012320

PATIENT
  Sex: 0

DRUGS (1)
  1. COPPERTONE SPORT STICK SPF 30 [Suspect]
     Indication: PRODUCT USED FOR UNKNOWN INDICATION
     Dosage: UNK, QD
     Route: 061
     Dates: start: 20130529, end: 20130530

REACTIONS (2)
  - Eye pain [Unknown]
  - Accidental exposure to product [Unknown]
